FAERS Safety Report 6698156-3 (Version None)
Quarter: 2010Q2

REPORT INFORMATION
  Report Type: 
  Country: None (occurrence: None)
  Receive Date: 20100426
  Receipt Date: 20100426
  Transmission Date: 20101027
  Serious: Yes (Other)
  Sender: FDA-Public Use
  Company Number: None

PATIENT
  Age: 37 Year
  Sex: Female
  Weight: 49.8957 kg

DRUGS (1)
  1. GABAPENTIN [Suspect]
     Indication: NEURALGIA
     Dosage: 2 PILLS EVERY 8 HOURS PO
     Route: 048

REACTIONS (4)
  - ANGER [None]
  - PERSONALITY CHANGE [None]
  - REFUSAL OF TREATMENT BY PATIENT [None]
  - THINKING ABNORMAL [None]
